FAERS Safety Report 6410996-4 (Version None)
Quarter: 2009Q4

REPORT INFORMATION
  Report Type: 
  Country: None (occurrence: None)
  Receive Date: 20091022
  Receipt Date: 20091014
  Transmission Date: 20100525
  Serious: Yes (Hospitalization)
  Sender: FDA-Public Use
  Company Number: US-AMGEN-QUU369319

PATIENT
  Sex: Female

DRUGS (1)
  1. ENBREL [Suspect]
     Indication: RHEUMATOID ARTHRITIS
     Route: 058
     Dates: start: 20090129

REACTIONS (10)
  - ABDOMINAL PAIN [None]
  - ABDOMINOPLASTY [None]
  - HEART RATE ABNORMAL [None]
  - INCISION SITE COMPLICATION [None]
  - INCISION SITE INFECTION [None]
  - INJECTION SITE IRRITATION [None]
  - INJECTION SITE PAIN [None]
  - OXYGEN SATURATION DECREASED [None]
  - RHEUMATOID ARTHRITIS [None]
  - UMBILICAL HERNIA [None]
